FAERS Safety Report 16333917 (Version 2)
Quarter: 2020Q2

REPORT INFORMATION
  Report Type: Spontaneous
  Country: US (occurrence: US)
  Receive Date: 20190520
  Receipt Date: 20200403
  Transmission Date: 20200713
  Serious: Yes (Death, Other)
  Sender: FDA-Public Use
  Company Number: US-GLAXOSMITHKLINE-US2019GSK087743

PATIENT
  Sex: Male

DRUGS (1)
  1. PREVACID [Suspect]
     Active Substance: LANSOPRAZOLE
     Indication: PRODUCT USED FOR UNKNOWN INDICATION
     Dosage: UNK
     Route: 065

REACTIONS (7)
  - Hypotension [Fatal]
  - Cardio-respiratory arrest [Fatal]
  - Chronic kidney disease [Fatal]
  - Coronary artery disease [Fatal]
  - Acute kidney injury [Unknown]
  - End stage renal disease [Unknown]
  - Dialysis [Unknown]
